FAERS Safety Report 15979195 (Version 1)
Quarter: 2019Q1

REPORT INFORMATION
  Report Type: Spontaneous
  Country: US (occurrence: US)
  Receive Date: 20190216
  Receipt Date: 20190216
  Transmission Date: 20190418
  Serious: Yes (Other)
  Sender: FDA-Public Use
  Company Number: None

PATIENT
  Age: 16 Month
  Sex: Male
  Weight: 12.51 kg

DRUGS (5)
  1. ALBUTEROL. [Concomitant]
     Active Substance: ALBUTEROL
  2. CHILDRENS TYLENOL [Concomitant]
     Active Substance: ACETAMINOPHEN
  3. OSELTAMIVIR [Suspect]
     Active Substance: OSELTAMIVIR
     Indication: INFLUENZA
     Dosage: ?          QUANTITY:60 MILLILITRES;?
     Route: 048
     Dates: start: 20190215, end: 20190215
  4. FLOVENT [Concomitant]
     Active Substance: FLUTICASONE PROPIONATE
  5. CHILDRENS MOTRIN [Concomitant]
     Active Substance: IBUPROFEN

REACTIONS (1)
  - Body temperature decreased [None]

NARRATIVE: CASE EVENT DATE: 20190215
